FAERS Safety Report 4411919-X (Version None)
Quarter: 2004Q3

REPORT INFORMATION
  Report Type: 
  Country: None (occurrence: None)
  Receive Date: 20040730
  Receipt Date: 20040220
  Transmission Date: 20050211
  Serious: No
  Sender: FDA-Public Use
  Company Number: US-GLAXOSMITHKLINE-A0499214A

PATIENT
  Sex: Female

DRUGS (3)
  1. ZANTAC [Suspect]
     Indication: ILL-DEFINED DISORDER
     Dosage: 300MG VARIABLE DOSE
     Route: 048
     Dates: start: 20020101, end: 20040201
  2. ACIPHEX [Suspect]
     Dosage: 40MG PER DAY
     Dates: start: 20020101, end: 20040201
  3. ORAL CONTRACEPTIVE [Concomitant]
     Route: 048

REACTIONS (1)
  - TINNITUS [None]
